FAERS Safety Report 13296831 (Version 1)
Quarter: 2017Q1

REPORT INFORMATION
  Report Type: Spontaneous
  Country: US (occurrence: US)
  Receive Date: 20170306
  Receipt Date: 20170306
  Transmission Date: 20170428
  Serious: No
  Sender: FDA-Public Use
  Company Number: US-AMGEN-USASP2017030443

PATIENT
  Sex: Female

DRUGS (3)
  1. ENBREL [Suspect]
     Active Substance: ETANERCEPT
     Indication: RHEUMATOID ARTHRITIS
     Dosage: 50 MG, QWK
     Route: 065
     Dates: start: 2014, end: 201702
  2. METHOTREXATE. [Concomitant]
     Active Substance: METHOTREXATE
  3. MOTRIN [Concomitant]
     Active Substance: IBUPROFEN

REACTIONS (2)
  - Pain [Not Recovered/Not Resolved]
  - Drug dose omission [Unknown]
